FAERS Safety Report 9218224 (Version 1)
Quarter: 2013Q2

REPORT INFORMATION
  Report Type: Spontaneous
  Country: US (occurrence: US)
  Receive Date: 20130408
  Receipt Date: 20130408
  Transmission Date: 20140414
  Serious: No
  Sender: FDA-Public Use
  Company Number: US-009507513-1304USA000670

PATIENT
  Sex: Male

DRUGS (1)
  1. SAPHRIS [Suspect]
     Route: 060

REACTIONS (4)
  - Speech disorder [Recovered/Resolved]
  - Movement disorder [Recovered/Resolved]
  - Gait disturbance [Recovered/Resolved]
  - Muscle injury [Recovered/Resolved]
